APPROVED DRUG PRODUCT: OXYCODONE AND ACETAMINOPHEN
Active Ingredient: ACETAMINOPHEN; OXYCODONE HYDROCHLORIDE
Strength: 325MG;5MG
Dosage Form/Route: TABLET;ORAL
Application: A207574 | Product #001
Applicant: SANALUZ LLC
Approved: Dec 13, 2016 | RLD: No | RS: No | Type: DISCN